FAERS Safety Report 7323258-8 (Version None)
Quarter: 2011Q1

REPORT INFORMATION
  Report Type: 
  Country: None (occurrence: None)
  Receive Date: 20110217
  Receipt Date: 20110207
  Transmission Date: 20110831
  Serious: Yes (Hospitalization)
  Sender: FDA-Public Use
  Company Number: 027065

PATIENT
  Age: 40 Year

DRUGS (1)
  1. LACOSAMIDE [Suspect]
     Dosage: (200 MG BID, 1 TABLET TWICE DAILY)

REACTIONS (1)
  - HOSPITALISATION [None]
